FAERS Safety Report 4791811-1 (Version None)
Quarter: 2005Q4

REPORT INFORMATION
  Report Type: 
  Country: None (occurrence: None)
  Receive Date: 20051005
  Receipt Date: 20050920
  Transmission Date: 20060501
  Serious: Yes (Death)
  Sender: FDA-Public Use
  Company Number: 216642

PATIENT
  Age: 66 Year
  Sex: Male
  Weight: 92 kg

DRUGS (31)
  1. RITUXIMAB(RITUXIMAB) CONC FOR SOLUTION FOR INFUSION [Suspect]
     Indication: CHRONIC LYMPHOCYTIC LEUKAEMIA
     Dosage: 500 MG/M2, INTRAVENOUS
     Route: 042
     Dates: start: 20050407, end: 20050519
  2. FLUDARABINE PHOSPHATE [Suspect]
     Indication: CHRONIC LYMPHOCYTIC LEUKAEMIA
     Dosage: 25 MG/M2, INTRAVENOUS
     Route: 042
     Dates: start: 20050408, end: 20050521
  3. CYCLOPHOSPHAMIDE [Suspect]
     Indication: CHRONIC LYMPHOCYTIC LEUKAEMIA
     Dosage: 250 MG/M2, Q28D, INTRAVENOUS
     Route: 042
     Dates: start: 20050408, end: 20050521
  4. PROPOFOL [Concomitant]
  5. MORFIN (MORPHINE HYDROCHLORIDE) [Concomitant]
  6. STEROFUNDIN (INTRAVENOUS SOLUTION NOS) [Concomitant]
  7. FUROSEMIDUM (FUROSEMIDE) [Concomitant]
  8. VORICONAZOLE (VORICONAZOLE) [Concomitant]
  9. IMIPENEM (IMIPENEM) [Concomitant]
  10. IMMUNE GLOBULIN INTRAVENOUS (HUMAN) [Concomitant]
  11. FILGRASTIM (FILGRASTIM) [Concomitant]
  12. METOPROLOL TARTRATE [Concomitant]
  13. ISOSORBIDE MONONITRATE [Concomitant]
  14. ALLOPURINOL [Concomitant]
  15. AMLODIPINE BESYLATE [Concomitant]
  16. VALIUM [Concomitant]
  17. ENALAPRIL MALEATE [Concomitant]
  18. VANCOMYCIN HYDROCHLORIDE [Concomitant]
  19. SALINE INFUSION (SODIUM CHLORIDE) [Concomitant]
  20. PANTOPRAZOLE SODIUM [Concomitant]
  21. FINASTERIDE [Concomitant]
  22. ACICLOVIRUM (ACYCLOVIR) [Concomitant]
  23. PLATELETS [Concomitant]
  24. ETAMSYLATE (ETHAMSYLATE [Concomitant]
  25. TRANEXAMIC ACID (TRANEXAMIC ACID) [Concomitant]
  26. OXYGEN THERAPY (OXYGEN) [Concomitant]
  27. CIPROFLOXACIN HCL (CIPROFLOXACIN HYDROCHLORIDE) [Concomitant]
  28. SULFAMERAZIN W TRIMETHOPRIM (SULFAMERAZINE, TRIMETHOPRIM) [Concomitant]
  29. ACETAMINOPHEN [Concomitant]
  30. LORATADINE [Concomitant]
  31. MOXIFLOXACIN HCL [Concomitant]

REACTIONS (10)
  - ANAEMIA [None]
  - DRUG INEFFECTIVE [None]
  - GASTROINTESTINAL HAEMORRHAGE [None]
  - HAEMOPTYSIS [None]
  - NEUTROPHIL PERCENTAGE DECREASED [None]
  - PNEUMONIA [None]
  - PROTHROMBIN TIME PROLONGED [None]
  - RESPIRATORY FAILURE [None]
  - SEPTIC SHOCK [None]
  - THROMBOCYTOPENIA [None]
